FAERS Safety Report 14663941 (Version 2)
Quarter: 2018Q3

REPORT INFORMATION
  Report Type: Spontaneous
  Country: PL (occurrence: PL)
  Receive Date: 20180321
  Receipt Date: 20180801
  Transmission Date: 20181010
  Serious: Yes (Other)
  Sender: FDA-Public Use
  Company Number: PL-PFIZER INC-2018073692

PATIENT
  Age: 60 Year
  Sex: Female

DRUGS (4)
  1. AXITINIB [Suspect]
     Active Substance: AXITINIB
     Dosage: 10 MG, DAILY
     Dates: start: 201408
  2. LEVOTHYROXINE. [Concomitant]
     Active Substance: LEVOTHYROXINE
     Dosage: 125 UG, DAILY
  3. AXITINIB [Suspect]
     Active Substance: AXITINIB
     Dosage: 6 MG, DAILY
  4. AXITINIB [Suspect]
     Active Substance: AXITINIB
     Dosage: 4 MG, DAILY

REACTIONS (7)
  - Hypothyroidism [Unknown]
  - Chronic kidney disease [Unknown]
  - Blood pressure increased [Unknown]
  - Epistaxis [Unknown]
  - Cough [Unknown]
  - Dyspnoea exertional [Unknown]
  - Asthenia [Unknown]

NARRATIVE: CASE EVENT DATE: 2014
